FAERS Safety Report 25023404 (Version 1)
Quarter: 2025Q1

REPORT INFORMATION
  Report Type: Report from Study
  Country: US (occurrence: US)
  Receive Date: 20250228
  Receipt Date: 20250228
  Transmission Date: 20250409
  Serious: No
  Sender: ACADIA PHARMACEUTICALS
  Company Number: US-ACADIA PHARMACEUTICALS INC.-ACA-2025-PIM-001569

PATIENT
  Age: 79 Year
  Sex: Female

DRUGS (24)
  1. NUPLAZID [Suspect]
     Active Substance: PIMAVANSERIN TARTRATE
     Indication: Parkinson^s disease psychosis
     Dosage: 34 MILLIGRAM, QD
     Route: 048
     Dates: start: 20250114
  2. ACETAMINOPHEN [Concomitant]
     Active Substance: ACETAMINOPHEN
  3. AMANTADINE [Concomitant]
     Active Substance: AMANTADINE
  4. AMLODIPINE [Concomitant]
     Active Substance: AMLODIPINE BESYLATE
  5. ASPIRIN [Concomitant]
     Active Substance: ASPIRIN
  6. VITAMIN B COMPLEX [Concomitant]
     Active Substance: CYANOCOBALAMIN\DEXPANTHENOL\NIACINAMIDE\PYRIDOXINE HYDROCHLORIDE\RIBOFLAVIN 5^-PHOSPHATE SODIUM\THIA
  7. CARBIDOPA\LEVODOPA [Concomitant]
     Active Substance: CARBIDOPA\LEVODOPA
  8. CHOLECALCIFEROL [Concomitant]
     Active Substance: CHOLECALCIFEROL
  9. ECONAZOLE [Concomitant]
     Active Substance: ECONAZOLE
     Route: 061
  10. ESTRADIOL [Concomitant]
     Active Substance: ESTRADIOL
     Route: 061
  11. GABAPENTIN [Concomitant]
     Active Substance: GABAPENTIN
  12. INDAPAMIDE [Concomitant]
     Active Substance: INDAPAMIDE
  13. KETOCONAZOLE [Concomitant]
     Active Substance: KETOCONAZOLE
     Route: 061
  14. LACTOBACILLUS ACIDOPHILUS [Concomitant]
     Active Substance: LACTOBACILLUS ACIDOPHILUS
  15. LISINOPRIL [Concomitant]
     Active Substance: LISINOPRIL
  16. MAGNESIUM [Concomitant]
     Active Substance: MAGNESIUM
  17. MELOXICAM [Concomitant]
     Active Substance: MELOXICAM
  18. METHIMAZOLE [Concomitant]
     Active Substance: METHIMAZOLE
  19. VITAMINS [Concomitant]
     Active Substance: VITAMINS
  20. NYSTATIN [Concomitant]
     Active Substance: NYSTATIN
     Route: 061
  21. PRAVASTATIN [Concomitant]
     Active Substance: PRAVASTATIN
  22. PSYLLIUM [PLANTAGO SPP. POWDER] [Concomitant]
  23. TRINTELLIX [Concomitant]
     Active Substance: VORTIOXETINE HYDROBROMIDE
  24. GEMTESA [Concomitant]
     Active Substance: VIBEGRON

REACTIONS (2)
  - Peripheral swelling [Not Recovered/Not Resolved]
  - Oedema peripheral [Not Recovered/Not Resolved]

NARRATIVE: CASE EVENT DATE: 20250207
